FAERS Safety Report 5740502-9 (Version None)
Quarter: 2008Q2

REPORT INFORMATION
  Report Type: 
  Country: None (occurrence: None)
  Receive Date: 20080516
  Receipt Date: 20080508
  Transmission Date: 20081010
  Serious: No
  Sender: FDA-Public Use
  Company Number: US-ABBOTT-08P-163-0449661-00

PATIENT
  Age: 60 Year
  Sex: Female
  Weight: 40.86 kg

DRUGS (2)
  1. HUMIRA [Suspect]
     Indication: RHEUMATOID ARTHRITIS
     Route: 058
     Dates: start: 20071201, end: 20080401
  2. UNKNOWN MEDICATIONS [Concomitant]

REACTIONS (3)
  - EYE INFLAMMATION [None]
  - VISION BLURRED [None]
  - VISUAL DISTURBANCE [None]
